FAERS Safety Report 17752509 (Version 3)
Quarter: 2021Q2

REPORT INFORMATION
  Report Type: Spontaneous
  Country: US (occurrence: US)
  Receive Date: 20200506
  Receipt Date: 20210518
  Transmission Date: 20210716
  Serious: Yes (Other)
  Sender: FDA-Public Use
  Company Number: US-PFIZER INC-2019176847

PATIENT
  Age: 76 Year
  Sex: Male
  Weight: 98 kg

DRUGS (2)
  1. LYRICA [Suspect]
     Active Substance: PREGABALIN
     Indication: DRUG DEPENDENCE
  2. LYRICA [Suspect]
     Active Substance: PREGABALIN
     Indication: POST LAMINECTOMY SYNDROME
     Dosage: 100 MG, 2X/DAY
     Route: 048

REACTIONS (3)
  - Limb injury [Unknown]
  - Dementia [Unknown]
  - Confusional state [Unknown]
